FAERS Safety Report 6097252-1 (Version None)
Quarter: 2009Q1

REPORT INFORMATION
  Report Type: 
  Country: None (occurrence: None)
  Receive Date: 20090227
  Receipt Date: 20090220
  Transmission Date: 20090719
  Serious: Yes (Other)
  Sender: FDA-Public Use
  Company Number: B0561916A

PATIENT
  Age: 23 Year
  Sex: Male

DRUGS (1)
  1. WELLBUTRIN XR [Suspect]
     Indication: MOOD SWINGS
     Dosage: 450MG PER DAY
     Route: 048
     Dates: start: 20080924, end: 20090201

REACTIONS (1)
  - EPILEPSY [None]
